FAERS Safety Report 25503156 (Version 1)
Quarter: 2025Q3

REPORT INFORMATION
  Report Type: Spontaneous
  Country: US (occurrence: US)
  Receive Date: 20250702
  Receipt Date: 20250702
  Transmission Date: 20251021
  Serious: Yes (Hospitalization)
  Sender: Alora Pharma
  Company Number: US-ACELLA PHARMACEUTICALS, LLC-2025ALO02310

PATIENT
  Age: 60 Year
  Sex: Male

DRUGS (5)
  1. BENZONATATE [Suspect]
     Active Substance: BENZONATATE
     Route: 048
  2. SERTRALINE [Suspect]
     Active Substance: SERTRALINE HYDROCHLORIDE
     Route: 048
  3. BUPROPION [Suspect]
     Active Substance: BUPROPION
     Route: 048
  4. QUETIAPINE [Suspect]
     Active Substance: QUETIAPINE
     Route: 048
  5. DICLOFENAC [Suspect]
     Active Substance: DICLOFENAC
     Route: 048

REACTIONS (2)
  - Seizure [Unknown]
  - Intentional overdose [Unknown]
